FAERS Safety Report 11523957 (Version 1)
Quarter: 2015Q3

REPORT INFORMATION
  Report Type: Spontaneous
  Country: US (occurrence: US)
  Receive Date: 20150918
  Receipt Date: 20150918
  Transmission Date: 20151125
  Serious: No
  Sender: FDA-Public Use
  Company Number: US-ROCHE-731436

PATIENT
  Age: 58 Year
  Sex: Male
  Weight: 102.1 kg

DRUGS (4)
  1. PEGASYS [Suspect]
     Active Substance: PEGINTERFERON ALFA-2A
     Indication: HEPATITIS C
     Dosage: MEDICATION ERROR
     Route: 058
     Dates: start: 20100928, end: 20100930
  2. COPEGUS [Concomitant]
     Active Substance: RIBAVIRIN
     Indication: HEPATITIS C
     Route: 048
  3. NAPROXEN. [Concomitant]
     Active Substance: NAPROXEN
     Route: 065
  4. PEGASYS [Suspect]
     Active Substance: PEGINTERFERON ALFA-2A
     Dosage: PRESCRIBED DOSE
     Route: 058

REACTIONS (2)
  - No adverse event [Unknown]
  - Medication error [Unknown]

NARRATIVE: CASE EVENT DATE: 20100928
